FAERS Safety Report 14593128 (Version 1)
Quarter: 2018Q1

REPORT INFORMATION
  Report Type: Spontaneous
  Country: IT (occurrence: IT)
  Receive Date: 20180302
  Receipt Date: 20180302
  Transmission Date: 20180509
  Serious: Yes (Hospitalization)
  Sender: FDA-Public Use
  Company Number: IT-SA-2018SA053495

PATIENT
  Age: 59 Year
  Sex: Female

DRUGS (5)
  1. DEURSIL [Concomitant]
     Active Substance: URSODIOL
  2. PLAVIX [Suspect]
     Active Substance: CLOPIDOGREL BISULFATE
     Route: 048
  3. COAPROVEL FORTE TABS 300 MG/12.5 MG [Concomitant]
     Route: 065
  4. CARDIOASPIRIN [Suspect]
     Active Substance: ASPIRIN
     Route: 065
  5. LANSOX [Concomitant]
     Active Substance: LANSOPRAZOLE

REACTIONS (2)
  - Wound [Recovering/Resolving]
  - Haemorrhage [Recovering/Resolving]

NARRATIVE: CASE EVENT DATE: 20180204
